FAERS Safety Report 6862181-X (Version None)
Quarter: 2010Q3

REPORT INFORMATION
  Report Type: 
  Country: None (occurrence: None)
  Receive Date: 20100721
  Receipt Date: 20100714
  Transmission Date: 20110219
  Serious: Yes (Hospitalization)
  Sender: FDA-Public Use
  Company Number: DE-TEVA-183710ISR

PATIENT
  Age: 78 Year
  Sex: Female
  Weight: 54 kg

DRUGS (10)
  1. GLIMEPIRIDE [Suspect]
     Indication: TYPE 2 DIABETES MELLITUS
     Route: 048
     Dates: end: 20080517
  2. ACETYLSALICYLIC ACID [Concomitant]
     Indication: AORTIC ARTERIOSCLEROSIS
     Route: 048
  3. CLONAZEPAM [Concomitant]
     Indication: RESTLESS LEGS SYNDROME
     Route: 048
  4. BLOPRESS PLUS [Concomitant]
     Indication: HYPERTENSION
     Route: 048
  5. IBUPROFEN [Concomitant]
     Indication: METASTATIC RENAL CELL CARCINOMA
     Dosage: 1 DF DOSAGE FORM
     Route: 048
  6. MOLSIDOMINE [Concomitant]
     Indication: AORTIC ARTERIOSCLEROSIS
     Dosage: 1 DF DOSAGE FORM IN DAY
     Route: 048
  7. MADOPAR [Concomitant]
     Indication: RESTLESS LEGS SYNDROME
     Dosage: 100 MG LEVODOPA AND 25 MG BENSERAZIDE
     Route: 048
  8. SERTRALINE HCL [Concomitant]
     Indication: DEPRESSION
     Route: 048
  9. VALORON N [Concomitant]
     Indication: METASTATIC RENAL CELL CARCINOMA
     Route: 048
  10. TORSEMIDE [Concomitant]
     Indication: HYPERTENSION
     Route: 048

REACTIONS (1)
  - SHOCK HYPOGLYCAEMIC [None]
